FAERS Safety Report 7906868-6 (Version None)
Quarter: 2011Q4

REPORT INFORMATION
  Report Type: 
  Country: None (occurrence: None)
  Receive Date: 20111110
  Receipt Date: 20111108
  Transmission Date: 20120403
  Serious: Yes (Death)
  Sender: FDA-Public Use
  Company Number: JP-EISAI INC-E2020-09893-SPO-JP

PATIENT
  Age: 86 Year
  Sex: Female

DRUGS (8)
  1. LOCHOLEST [Concomitant]
     Route: 048
     Dates: start: 20100701
  2. ARICEPT [Suspect]
     Indication: DEMENTIA ALZHEIMER'S TYPE
     Route: 048
     Dates: start: 20111017
  3. TOWARAT-CR [Concomitant]
     Route: 048
     Dates: start: 20100701
  4. NITRAZEPAM [Concomitant]
     Route: 048
     Dates: start: 20100701
  5. LOXONIN [Concomitant]
     Route: 048
     Dates: start: 20100701
  6. PURSENNID [Concomitant]
     Route: 048
     Dates: start: 20100701
  7. PLAVIX [Concomitant]
     Route: 048
     Dates: start: 20100701
  8. HALCION [Concomitant]
     Route: 048
     Dates: start: 20100701

REACTIONS (1)
  - COMPLETED SUICIDE [None]
